FAERS Safety Report 4893537-2 (Version None)
Quarter: 2006Q1

REPORT INFORMATION
  Report Type: 
  Country: None (occurrence: None)
  Receive Date: 20060127
  Receipt Date: 20060116
  Transmission Date: 20060701
  Serious: Yes (Hospitalization, Other)
  Sender: FDA-Public Use
  Company Number: 2006AC00121

PATIENT
  Age: 4 Year
  Sex: Male
  Weight: 13.8 kg

DRUGS (6)
  1. LIDOCAINE W/ EPINEPHRINE [Suspect]
     Indication: LOCAL ANAESTHESIA
     Dosage: PERIORAL INJECTION. 5.5 ML ADMINISTERED AS MULTIPLE INJECTIONS OVER 60 MINS.
  2. SEVOFLURANE [Concomitant]
     Indication: GENERAL ANAESTHESIA
     Dosage: INDUCTION AND MAINTENANCE ANESTHESIA. GIVEN THROUGH LARYNGEAL MASK AIRWAY.
  3. PARACETAMOL [Concomitant]
     Indication: ANALGESIC EFFECT
     Route: 054
  4. DICLOFENAC [Concomitant]
     Indication: ANALGESIC EFFECT
  5. FENTANYL [Concomitant]
     Indication: ANALGESIC EFFECT
     Dosage: REPEATED DOSES
     Route: 042
  6. HARTMAN'S SOLUTION [Concomitant]
     Dosage: CONTINUOUS INFUSION AT MAINTENANCE RATE

REACTIONS (2)
  - PROCEDURAL COMPLICATION [None]
  - SINUS TACHYCARDIA [None]
